FAERS Safety Report 16059088 (Version 1)
Quarter: 2019Q1

REPORT INFORMATION
  Report Type: Other
  Country: US (occurrence: US)
  Receive Date: 20190311
  Receipt Date: 20190311
  Transmission Date: 20190418
  Serious: Yes (Hospitalization)
  Sender: FDA-Public Use
  Company Number: US-B. BRAUN MEDICAL INC.-2063828

PATIENT
  Age: 29 Year
  Sex: Male

DRUGS (4)
  1. TIGECYCLINE. [Concomitant]
     Active Substance: TIGECYCLINE
  2. GENTAMICIN. [Concomitant]
     Active Substance: GENTAMICIN
     Route: 042
  3. MEROPENEM FOR INJECTION USP AND SODIUM CHLORIDE INJECTION USP IN THE [Suspect]
     Active Substance: MEROPENEM\SODIUM CHLORIDE
     Route: 042
  4. GENTAMICIN. [Concomitant]
     Active Substance: GENTAMICIN
     Route: 037

REACTIONS (2)
  - Leukopenia [None]
  - Rash [None]
